FAERS Safety Report 10538730 (Version 1)
Quarter: 2014Q4

REPORT INFORMATION
  Report Type: Spontaneous
  Country: DE (occurrence: DE)
  Receive Date: 20141023
  Receipt Date: 20141023
  Transmission Date: 20150529
  Serious: Yes (Other)
  Sender: FDA-Public Use
  Company Number: DE-WATSON-2014-22385

PATIENT
  Age: 36 Year
  Sex: Male
  Weight: 82 kg

DRUGS (1)
  1. CITALOPRAM [Suspect]
     Active Substance: CITALOPRAM HYDROBROMIDE
     Indication: BURNOUT SYNDROME
     Dosage: 20 MG, DAILY
     Route: 048
     Dates: start: 20140812, end: 20140922

REACTIONS (1)
  - Ejaculation disorder [Not Recovered/Not Resolved]

NARRATIVE: CASE EVENT DATE: 201409
